FAERS Safety Report 23491737 (Version 1)
Quarter: 2024Q1

REPORT INFORMATION
  Report Type: Report from Study
  Country: ZA (occurrence: ZA)
  Receive Date: 20240207
  Receipt Date: 20240207
  Transmission Date: 20240410
  Serious: Yes (Other)
  Sender: FDA-Public Use
  Company Number: ZA-AstraZeneca-2024A028347

PATIENT
  Age: 12 Month
  Sex: Female
  Weight: 4.8 kg

DRUGS (1)
  1. SYNAGIS [Suspect]
     Active Substance: PALIVIZUMAB
     Indication: Respiratory syncytial virus infection
     Route: 030

REACTIONS (7)
  - Seizure [Unknown]
  - Hypoxic-ischaemic encephalopathy [Unknown]
  - Cerebral palsy [Unknown]
  - Respiratory distress [Unknown]
  - Pneumonia respiratory syncytial viral [Unknown]
  - Norovirus infection [Unknown]
  - Therapeutic hypothermia [Unknown]
